FAERS Safety Report 18402930 (Version 2)
Quarter: 2020Q4

REPORT INFORMATION
  Report Type: Spontaneous
  Country: ES (occurrence: ES)
  Receive Date: 20201019
  Receipt Date: 20201120
  Transmission Date: 20210114
  Serious: Yes (Hospitalization, Other)
  Sender: FDA-Public Use
  Company Number: NVSC2020ES278034

PATIENT
  Age: 83 Year
  Sex: Male

DRUGS (9)
  1. ATORVASTATINA MYLAN [Suspect]
     Active Substance: ATORVASTATIN
     Indication: URINARY INCONTINENCE
     Dosage: 1 DF, QD (EVERY 24 HOURS)
     Route: 048
  2. SINTROM [Suspect]
     Active Substance: ACENOCOUMAROL
     Indication: OEDEMA
     Dosage: 16 MG, QW
     Route: 048
  3. PRO ULCO [Suspect]
     Active Substance: LANSOPRAZOLE
     Indication: GASTROINTESTINAL DISORDER
     Dosage: 15 MG, QD
     Route: 048
  4. DIGOXINA [Suspect]
     Active Substance: DIGOXIN
     Indication: CEREBROVASCULAR ACCIDENT
     Dosage: 0.5 MG (EVERY 25 HOURS)
     Route: 048
  5. OMEPRAZOLE. [Suspect]
     Active Substance: OMEPRAZOLE
     Indication: GASTROINTESTINAL DISORDER
     Dosage: 20 MG, QD
     Route: 048
  6. VALSARTAN MYLAN [Suspect]
     Active Substance: VALSARTAN
     Indication: BLOOD PRESSURE ABNORMAL
     Dosage: 160 MG, QD
     Route: 048
  7. ENALAPRIL MYLAN [Suspect]
     Active Substance: ENALAPRIL
     Indication: BLOOD PRESSURE ABNORMAL
     Dosage: 20 MG, QD
     Route: 048
  8. DIGOXINA [Suspect]
     Active Substance: DIGOXIN
     Dosage: 0.5 MG, QD
     Route: 048
  9. DOLOCATIL [Suspect]
     Active Substance: ACETAMINOPHEN
     Indication: PAIN
     Dosage: 1 G, Q8H
     Route: 048

REACTIONS (5)
  - Fatigue [Recovered/Resolved]
  - Product dosage form issue [Recovered/Resolved]
  - Atrioventricular block complete [Recovered/Resolved]
  - Gastrointestinal disorder [Recovered/Resolved]
  - Cough [Recovered/Resolved]
